FAERS Safety Report 24851121 (Version 1)
Quarter: 2025Q1

REPORT INFORMATION
  Report Type: Spontaneous
  Country: US (occurrence: None)
  Receive Date: 20250116
  Receipt Date: 20250116
  Transmission Date: 20250409
  Serious: No
  Sender: FDA-CTU
  Company Number: None

PATIENT
  Age: 24 Year
  Sex: Male
  Weight: 88.0 kg

DRUGS (1)
  1. HUMALOG [Suspect]
     Active Substance: INSULIN LISPRO
     Dosage: OTHER QUANTITY : 5-10 U GAC TO PRN;?FREQUENCY : 3 TIMES A DAY;?
     Route: 058
     Dates: start: 20200101, end: 20210101

REACTIONS (3)
  - Hyperglycaemia [None]
  - Injection site erythema [None]
  - Hyperglycaemia [None]

NARRATIVE: CASE EVENT DATE: 20200101
